FAERS Safety Report 5049490-4 (Version None)
Quarter: 2006Q3

REPORT INFORMATION
  Report Type: 
  Country: None (occurrence: None)
  Receive Date: 20060711
  Receipt Date: 20060711
  Transmission Date: 20061208
  Serious: No
  Sender: FDA-Public Use
  Company Number: None

PATIENT
  Sex: Male
  Weight: 11.7935 kg

DRUGS (1)
  1. ELIDEL [Suspect]
     Indication: DERMATITIS ATOPIC
     Dosage: DAILY FOR 1 WEEK
     Dates: start: 20030813, end: 20030821

REACTIONS (1)
  - ACUTE LYMPHOCYTIC LEUKAEMIA [None]
